FAERS Safety Report 4530635-7 (Version None)
Quarter: 2004Q4

REPORT INFORMATION
  Report Type: 
  Country: None (occurrence: None)
  Receive Date: 20041216
  Receipt Date: 20041126
  Transmission Date: 20050328
  Serious: Yes (Hospitalization)
  Sender: FDA-Public Use
  Company Number: FR_041105339

PATIENT
  Age: 66 Year
  Sex: Male
  Weight: 63 kg

DRUGS (9)
  1. PROZAC [Suspect]
     Dosage: 1 DSG FORM DAY
     Dates: start: 20040317, end: 20040322
  2. ROVAMYCINE (SPIRAMYCIN) [Concomitant]
  3. LOVENOX [Concomitant]
  4. MOPRAL (OMEPRAZOLE RATIOPHARM) [Concomitant]
  5. FLUCONAZOLE [Concomitant]
  6. ATARAX (ALPRAZOLAM DUM) [Concomitant]
  7. LYSANXIA (PRAZEPAM) [Concomitant]
  8. BRICANYL [Concomitant]
  9. FUNGIZONE [Concomitant]

REACTIONS (2)
  - OEDEMA [None]
  - RASH ERYTHEMATOUS [None]
